FAERS Safety Report 15321376 (Version 4)
Quarter: 2022Q1

REPORT INFORMATION
  Report Type: Spontaneous
  Country: HR (occurrence: HR)
  Receive Date: 20180827
  Receipt Date: 20220328
  Transmission Date: 20220424
  Serious: Yes (Hospitalization, Other)
  Sender: FDA-Public Use
  Company Number: HR-PFIZER INC-2018340012

PATIENT
  Age: 26 Year
  Sex: Male

DRUGS (5)
  1. METHOTREXATE SODIUM [Interacting]
     Active Substance: METHOTREXATE SODIUM
     Indication: Acute lymphocytic leukaemia
     Dosage: 5000 MG/M2, CYCLIC
     Route: 042
  2. PANTOPRAZOLE [Interacting]
     Active Substance: PANTOPRAZOLE
     Indication: Acute lymphocytic leukaemia
     Dosage: UNK
  3. KETOPROFEN [Interacting]
     Active Substance: KETOPROFEN
     Indication: Acute lymphocytic leukaemia
     Dosage: UNK
  4. CIPROFLOXACIN [Interacting]
     Active Substance: CIPROFLOXACIN
     Indication: Acute lymphocytic leukaemia
     Dosage: UNK
  5. PIPERACILLIN SODIUM\TAZOBACTAM SODIUM [Interacting]
     Active Substance: PIPERACILLIN SODIUM\TAZOBACTAM SODIUM
     Indication: Acute lymphocytic leukaemia
     Dosage: UNK

REACTIONS (8)
  - Drug-induced liver injury [Recovered/Resolved]
  - Acute kidney injury [Recovering/Resolving]
  - Agranulocytosis [Recovered/Resolved]
  - Posterior reversible encephalopathy syndrome [Recovered/Resolved]
  - Toxicity to various agents [Recovered/Resolved]
  - Drug interaction [Unknown]
  - Drug level increased [Recovering/Resolving]
  - Drug clearance decreased [Recovering/Resolving]
